FAERS Safety Report 4555895-8 (Version None)
Quarter: 2005Q1

REPORT INFORMATION
  Report Type: 
  Country: None (occurrence: None)
  Receive Date: 20050119
  Receipt Date: 20050114
  Transmission Date: 20050727
  Serious: Yes (Life-Threatening, Other)
  Sender: FDA-Public Use
  Company Number: PHRM2005FR00526

PATIENT
  Age: 64 Year
  Sex: Female

DRUGS (4)
  1. CELLCEPT [Suspect]
     Indication: BONE MARROW TRANSPLANT
     Dosage: 1.5 G DAILY
     Route: 042
     Dates: start: 20040831, end: 20041003
  2. ENDOXAN [Suspect]
     Dosage: 2.7 G DAILY
     Route: 042
     Dates: start: 20040828, end: 20040828
  3. FLUDARA [Suspect]
     Dosage: 1 DF DAILY
     Route: 042
     Dates: start: 20040828, end: 20040901
  4. SANDIMMUNE [Suspect]
     Indication: BONE MARROW TRANSPLANT
     Dosage: 340 MG DAILY
     Route: 042
     Dates: start: 20040831

REACTIONS (23)
  - ABNORMAL BEHAVIOUR [None]
  - ACALCULIA [None]
  - AGITATION [None]
  - APLASIA [None]
  - ASPERGILLOSIS [None]
  - BONE MARROW DEPRESSION [None]
  - COMA [None]
  - CONVULSION [None]
  - CYTOMEGALOVIRUS ANTIGEN POSITIVE [None]
  - DIFFICULTY IN WALKING [None]
  - ENCEPHALITIS [None]
  - ENCEPHALOPATHY [None]
  - EXTRAPYRAMIDAL DISORDER [None]
  - FUNGUS SEROLOGY TEST POSITIVE [None]
  - GAIT DISTURBANCE [None]
  - GENERALISED OEDEMA [None]
  - GRAFT VERSUS HOST DISEASE [None]
  - MEMORY IMPAIRMENT [None]
  - OEDEMA [None]
  - PSYCHOMOTOR RETARDATION [None]
  - PSYCHOMOTOR SKILLS IMPAIRED [None]
  - PYRAMIDAL TRACT SYNDROME [None]
  - TREMOR [None]
